FAERS Safety Report 4679669-2 (Version None)
Quarter: 2005Q2

REPORT INFORMATION
  Report Type: 
  Country: None (occurrence: None)
  Receive Date: 20050602
  Receipt Date: 20050420
  Transmission Date: 20051028
  Serious: Yes (Disabling)
  Sender: FDA-Public Use
  Company Number: US-BRISTOL-MYERS SQUIBB COMPANY-12939625

PATIENT
  Age: 52 Year
  Sex: Female

DRUGS (4)
  1. KENALOG-40 [Suspect]
     Indication: RETINAL OEDEMA
     Route: 031
     Dates: start: 20050414, end: 20050414
  2. KENALOG-40 [Suspect]
     Indication: EYE INFLAMMATION
     Route: 031
     Dates: start: 20050414, end: 20050414
  3. KENALOG-40 [Suspect]
     Route: 031
     Dates: start: 20050414, end: 20050414
  4. KENALOG-40 [Suspect]
     Route: 031
     Dates: start: 20050414, end: 20050414

REACTIONS (1)
  - EYE INFECTION [None]
